FAERS Safety Report 17084039 (Version 3)
Quarter: 2019Q4

REPORT INFORMATION
  Report Type: Spontaneous
  Country: US (occurrence: US)
  Receive Date: 20191127
  Receipt Date: 20191203
  Transmission Date: 20200122
  Serious: Yes (Life-Threatening, Hospitalization)
  Sender: FDA-Public Use
  Company Number: US-ABBVIE-19K-163-3171721-00

PATIENT
  Sex: Female
  Weight: 50.2 kg

DRUGS (5)
  1. ABEMACICLIB [Suspect]
     Active Substance: ABEMACICLIB
     Indication: INVASIVE DUCTAL BREAST CARCINOMA
     Route: 048
     Dates: start: 20190812, end: 20191104
  2. LETROZOLE. [Suspect]
     Active Substance: LETROZOLE
     Indication: INVASIVE DUCTAL BREAST CARCINOMA
     Route: 048
     Dates: start: 20190812
  3. LOPERAMIDE HYDROCHLORIDE. [Concomitant]
     Active Substance: LOPERAMIDE HYDROCHLORIDE
     Indication: DIARRHOEA
     Dates: start: 20190814
  4. LEUPROLIDE [Suspect]
     Active Substance: LEUPROLIDE
     Indication: BREAST CANCER
  5. LEUPROLIDE [Suspect]
     Active Substance: LEUPROLIDE
     Indication: INVASIVE DUCTAL BREAST CARCINOMA
     Route: 030

REACTIONS (3)
  - Upper respiratory tract infection [Unknown]
  - Febrile neutropenia [Recovering/Resolving]
  - Pyrexia [Unknown]

NARRATIVE: CASE EVENT DATE: 20191113
